FAERS Safety Report 5036387-9 (Version None)
Quarter: 2006Q2

REPORT INFORMATION
  Report Type: 
  Country: None (occurrence: None)
  Receive Date: 20060601
  Receipt Date: 20060419
  Transmission Date: 20061013
  Serious: No
  Sender: FDA-Public Use
  Company Number: US200604003269

PATIENT
  Sex: Female

DRUGS (3)
  1. CYMBALTA [Suspect]
     Indication: BACK PAIN
     Dosage: 30 MG, DAILY (1/D)
     Dates: start: 20051201
  2. ZOCOR [Concomitant]
  3. ASPIRIN [Concomitant]

REACTIONS (8)
  - ANXIETY [None]
  - BLOOD PRESSURE INCREASED [None]
  - CONSTIPATION [None]
  - DYSPEPSIA [None]
  - FATIGUE [None]
  - INSOMNIA [None]
  - LIBIDO DECREASED [None]
  - PANIC ATTACK [None]
